FAERS Safety Report 5696553-6 (Version None)
Quarter: 2008Q2

REPORT INFORMATION
  Report Type: 
  Country: None (occurrence: None)
  Receive Date: 20080403
  Receipt Date: 20080403
  Transmission Date: 20081010
  Serious: No
  Sender: FDA-Public Use
  Company Number: None

PATIENT
  Sex: Male
  Weight: 30 kg

DRUGS (2)
  1. NAFCILLIN SODIUM [Suspect]
     Indication: ENDOCARDITIS
     Dosage: 1.2 GRAMS  Q6 HOURS  IV
     Route: 042
     Dates: start: 20080309, end: 20080320
  2. NAFCILLIN SODIUM [Suspect]
     Indication: ENDOCARDITIS
     Dosage: 1.2 GRAMS  Q6 HOURS  IV
     Route: 042
     Dates: start: 20080401, end: 20080403

REACTIONS (5)
  - ABDOMINAL PAIN [None]
  - FATIGUE [None]
  - MUSCLE SPASMS [None]
  - PARAESTHESIA [None]
  - TRICUSPID VALVE REPLACEMENT [None]
